FAERS Safety Report 5965037-X (Version None)
Quarter: 2008Q4

REPORT INFORMATION
  Report Type: 
  Country: None (occurrence: None)
  Receive Date: 20081125
  Receipt Date: 20081114
  Transmission Date: 20090506
  Serious: Yes (Other)
  Sender: FDA-Public Use
  Company Number: PHBS2008GB05498

PATIENT
  Age: 73 Year
  Sex: Female

DRUGS (2)
  1. PILOCARPINE [Suspect]
     Indication: INTRAOCULAR PRESSURE INCREASED
  2. LATANOPROST [Concomitant]

REACTIONS (7)
  - ANGLE CLOSURE GLAUCOMA [None]
  - CATARACT OPERATION [None]
  - INTRAOCULAR LENS IMPLANT [None]
  - INTRAOCULAR PRESSURE INCREASED [None]
  - PHOTOCOAGULATION [None]
  - TRABECULECTOMY [None]
  - VISUAL ACUITY REDUCED [None]
